FAERS Safety Report 16217348 (Version 1)
Quarter: 2019Q2

REPORT INFORMATION
  Report Type: Spontaneous
  Country: US (occurrence: US)
  Receive Date: 20190315
  Receipt Date: 20190315
  Transmission Date: 20190711
  Serious: Yes (Hospitalization)
  Sender: FDA-Public Use
  Company Number: None

PATIENT
  Age: 62 Year
  Sex: Male

DRUGS (7)
  1. FENOFIBRATE. [Concomitant]
     Active Substance: FENOFIBRATE
  2. HUMIRA [Suspect]
     Active Substance: ADALIMUMAB
     Indication: CROHN^S DISEASE
     Route: 058
     Dates: start: 20180719
  3. PREDNISONE. [Concomitant]
     Active Substance: PREDNISONE
  4. VITAMIN D NOS [Concomitant]
     Active Substance: VITAMIN D NOS
  5. SIMVASTATIN. [Concomitant]
     Active Substance: SIMVASTATIN
  6. COENZYME Q10 [Concomitant]
     Active Substance: UBIDECARENONE
  7. FLUOXETINE [Concomitant]
     Active Substance: FLUOXETINE HYDROCHLORIDE

REACTIONS (1)
  - Urinary tract infection [None]
